FAERS Safety Report 5041077-2 (Version None)
Quarter: 2006Q2

REPORT INFORMATION
  Report Type: 
  Country: None (occurrence: None)
  Receive Date: 20060626
  Receipt Date: 20060616
  Transmission Date: 20061013
  Serious: Yes (Hospitalization)
  Sender: FDA-Public Use
  Company Number: TPA2006A00986

PATIENT
  Age: 68 Year
  Sex: Male
  Weight: 92.9874 kg

DRUGS (12)
  1. ACTOS [Suspect]
     Indication: DIABETES MELLITUS NON-INSULIN-DEPENDENT
     Dosage: 45 MG, 1 IN 1 D, PER ORAL
     Route: 048
     Dates: start: 20060301
  2. GLIPIZIDE [Concomitant]
  3. POTASSIUM (POTASSIUM) [Concomitant]
  4. VASOTEC [Concomitant]
  5. XANAX [Concomitant]
  6. AMITRIPTYLINE HCL [Concomitant]
  7. HYDRALAZINE HCL [Concomitant]
  8. PREVACID [Concomitant]
  9. METOPROLOL SUCCINATE [Concomitant]
  10. GABAPENTIN [Concomitant]
  11. LIPITOR [Concomitant]
  12. PLAVIX [Concomitant]

REACTIONS (4)
  - CLOSTRIDIAL INFECTION [None]
  - LUNG INFECTION [None]
  - PNEUMONIA [None]
  - STAPHYLOCOCCAL INFECTION [None]
